FAERS Safety Report 9842076 (Version 1)
Quarter: 2014Q1

REPORT INFORMATION
  Report Type: Spontaneous
  Country: US (occurrence: US)
  Receive Date: 20140124
  Receipt Date: 20140124
  Transmission Date: 20141002
  Serious: Yes (Other)
  Sender: FDA-Public Use
  Company Number: CHPA2014US000951

PATIENT
  Sex: Female

DRUGS (1)
  1. PRIVATE LABEL STRENGTH UNKNOWN [Suspect]
     Indication: SMOKING CESSATION THERAPY
     Route: 062

REACTIONS (3)
  - Type 2 diabetes mellitus [Not Recovered/Not Resolved]
  - Hypertension [Not Recovered/Not Resolved]
  - Abnormal dreams [Unknown]
